FAERS Safety Report 7218710-X (Version None)
Quarter: 2011Q1

REPORT INFORMATION
  Report Type: 
  Country: None (occurrence: None)
  Receive Date: 20110110
  Receipt Date: 20101216
  Transmission Date: 20110831
  Serious: Yes (Death)
  Sender: FDA-Public Use
  Company Number: US-ABBOTT-10P-163-0683496-00

PATIENT
  Sex: Female
  Weight: 72.64 kg

DRUGS (1)
  1. VICODIN [Suspect]
     Indication: INTERVERTEBRAL DISC DEGENERATION

REACTIONS (1)
  - OVERDOSE [None]
